FAERS Safety Report 8030947-9 (Version None)
Quarter: 2012Q1

REPORT INFORMATION
  Report Type: 
  Country: None (occurrence: None)
  Receive Date: 20120109
  Receipt Date: 20111228
  Transmission Date: 20120608
  Serious: Yes (Hospitalization)
  Sender: FDA-Public Use
  Company Number: IT-PFIZER INC-2011316286

PATIENT
  Age: 50 Year
  Sex: Female

DRUGS (2)
  1. EXEMESTANE [Suspect]
     Indication: BREAST CANCER FEMALE
     Dosage: 25 MG, UNK
     Route: 048
     Dates: start: 20071109
  2. TRIPTORELIN PAMOATE [Suspect]
     Indication: BREAST CANCER FEMALE
     Dosage: 3.75 MG, UNK
     Route: 030
     Dates: start: 20070529

REACTIONS (2)
  - HYPERTENSION [None]
  - DIABETES MELLITUS [None]
